FAERS Safety Report 22137939 (Version 1)
Quarter: 2023Q1

REPORT INFORMATION
  Report Type: Spontaneous
  Country: NP (occurrence: NP)
  Receive Date: 20230325
  Receipt Date: 20230325
  Transmission Date: 20230418
  Serious: Yes (Other)
  Sender: FDA-Public Use
  Company Number: NP-002147023-NVSC2023NP064800

PATIENT
  Sex: Male

DRUGS (1)
  1. GLIVEC [Suspect]
     Active Substance: IMATINIB MESYLATE
     Indication: Chronic myeloid leukaemia
     Dosage: 200 MG (2 X 100 MG)
     Route: 065

REACTIONS (2)
  - Refractory cytopenia with unilineage dysplasia [Unknown]
  - Incorrect dose administered [Unknown]
